FAERS Safety Report 14651378 (Version 1)
Quarter: 2018Q1

REPORT INFORMATION
  Report Type: Spontaneous
  Country: US (occurrence: US)
  Receive Date: 20180316
  Receipt Date: 20180316
  Transmission Date: 20180509
  Serious: Yes (Hospitalization)
  Sender: FDA-Public Use
  Company Number: None

PATIENT
  Sex: Male

DRUGS (3)
  1. BOSULIF [Suspect]
     Active Substance: BOSUTINIB MONOHYDRATE
     Indication: MYELOID LEUKAEMIA
     Route: 048
     Dates: start: 20180302
  2. LORAZAPAM, SUCRALFATE, LOSARTAN/HCT, QUETIAPINE, FUROSEMIDE [Concomitant]
  3. SUCRALFATE, VENLAFAXINE, AMLODIPINE, TRAZODONE [Concomitant]

REACTIONS (1)
  - Hospitalisation [None]
